FAERS Safety Report 13621223 (Version 1)
Quarter: 2017Q2

REPORT INFORMATION
  Report Type: Report from Study
  Country: DE (occurrence: DE)
  Receive Date: 20170607
  Receipt Date: 20170607
  Transmission Date: 20170830
  Serious: Yes (Death, Life-Threatening, Hospitalization)
  Sender: FDA-Public Use
  Company Number: DE-DRREDDYS-GER/GER/17/0091044

PATIENT
  Sex: Male

DRUGS (2)
  1. ZOLEDRONSAURE BETA [Suspect]
     Active Substance: ZOLEDRONIC ACID
     Indication: METASTASES TO PROSTATE
     Route: 042
     Dates: start: 20150326, end: 20150618
  2. CEFUROXIM [Concomitant]
     Active Substance: CEFUROXIME
     Indication: URINARY TRACT INFECTION

REACTIONS (1)
  - Prostate cancer [Fatal]
